FAERS Safety Report 13828039 (Version 1)
Quarter: 2017Q3

REPORT INFORMATION
  Report Type: Spontaneous
  Country: None (occurrence: US)
  Receive Date: 20170802
  Receipt Date: 20170802
  Transmission Date: 20171127
  Serious: Yes (Hospitalization)
  Sender: FDA-Public Use
  Company Number: None

PATIENT
  Age: 67 Year
  Sex: Male
  Weight: 79.4 kg

DRUGS (1)
  1. CISPLATIN. [Suspect]
     Active Substance: CISPLATIN
     Dates: end: 20170711

REACTIONS (4)
  - Mucosal inflammation [None]
  - Hyponatraemia [None]
  - Fluid intake reduced [None]
  - Productive cough [None]

NARRATIVE: CASE EVENT DATE: 20170717
